FAERS Safety Report 7484220-8 (Version None)
Quarter: 2011Q2

REPORT INFORMATION
  Report Type: 
  Country: None (occurrence: None)
  Receive Date: 20110517
  Receipt Date: 20110509
  Transmission Date: 20111010
  Serious: Yes (Other)
  Sender: FDA-Public Use
  Company Number: PHHY2011US39644

PATIENT
  Sex: Female

DRUGS (1)
  1. GILENYA [Suspect]
     Indication: MULTIPLE SCLEROSIS
     Dosage: 0.5 MG, QD
     Route: 048
     Dates: start: 20110507

REACTIONS (5)
  - PAIN IN EXTREMITY [None]
  - DIZZINESS [None]
  - DYSPNOEA [None]
  - ASTHENIA [None]
  - CHEST DISCOMFORT [None]
